FAERS Safety Report 5831367-5 (Version None)
Quarter: 2008Q3

REPORT INFORMATION
  Report Type: 
  Country: None (occurrence: None)
  Receive Date: 20080801
  Receipt Date: 20080724
  Transmission Date: 20090109
  Serious: No
  Sender: FDA-Public Use
  Company Number: US-BOEHRINGER INGELHEIM GMBH, GERMANY-2008-BP-08064BP

PATIENT
  Age: 85 Year
  Sex: Female

DRUGS (8)
  1. CATAPRES-TTS-1 [Suspect]
     Indication: HYPERTENSION
     Route: 061
     Dates: start: 20020101
  2. COZAAR [Concomitant]
  3. VERAPAMIL [Concomitant]
  4. FUROSEMIDE [Concomitant]
  5. GABAPENTIN [Concomitant]
  6. LIPITOR [Concomitant]
  7. RANITIDINE HCL [Concomitant]
  8. ASPIRIN [Concomitant]

REACTIONS (3)
  - APPLICATION SITE ERYTHEMA [None]
  - APPLICATION SITE IRRITATION [None]
  - BLOOD PRESSURE INCREASED [None]
